FAERS Safety Report 5445005-7 (Version None)
Quarter: 2007Q3

REPORT INFORMATION
  Report Type: 
  Country: None (occurrence: None)
  Receive Date: 20070731
  Receipt Date: 20070326
  Transmission Date: 20080115
  Serious: Yes (Hospitalization)
  Sender: FDA-Public Use
  Company Number: US200703003634

PATIENT
  Age: 68 Year
  Sex: Male
  Weight: 87.5 kg

DRUGS (7)
  1. BYETTA [Suspect]
     Indication: TYPE 2 DIABETES MELLITUS
     Dosage: 5 UG, 2/D, SUBCUTANEOUS
     Route: 058
     Dates: start: 20060201
  2. METFORMIN HCL [Concomitant]
  3. GLYBURIDE [Concomitant]
  4. VERAPAMIL [Concomitant]
  5. LISIONPRIL (LISIONPRIL) [Concomitant]
  6. RESTORIL [Concomitant]
  7. PERCOCET (0XYCODONE HYDROCHLORIDE, PARACETAMOL) [Concomitant]

REACTIONS (4)
  - BLOOD GLUCOSE FLUCTUATION [None]
  - DECREASED APPETITE [None]
  - PANCREATITIS [None]
  - WEIGHT DECREASED [None]
